FAERS Safety Report 9918215 (Version 2)
Quarter: 2015Q4

REPORT INFORMATION
  Report Type: Report from Study
  Country: US (occurrence: US)
  Receive Date: 20140223
  Receipt Date: 20151117
  Transmission Date: 20160314
  Serious: Yes (Other)
  Sender: FDA-Public Use
  Company Number: US-ROCHE-1336333

PATIENT
  Sex: Male

DRUGS (16)
  1. LUCENTIS [Suspect]
     Active Substance: RANIBIZUMAB
     Indication: DIABETIC RETINOPATHY
     Route: 050
  2. LUCENTIS [Suspect]
     Active Substance: RANIBIZUMAB
     Indication: DIABETIC EYE DISEASE
  3. BEPREVE [Concomitant]
     Active Substance: BEPOTASTINE BESILATE
     Dosage: AFFECTED EYE(S)
     Route: 047
  4. PHENYLEPHRINE [Concomitant]
     Active Substance: PHENYLEPHRINE\PHENYLEPHRINE HYDROCHLORIDE
     Route: 065
  5. LIDOCAINE. [Concomitant]
     Active Substance: LIDOCAINE
     Dosage: SUB CONJUNCTIVAL
     Route: 065
  6. TROPICAMIDE. [Concomitant]
     Active Substance: TROPICAMIDE
     Route: 065
  7. BETADINE [Concomitant]
     Active Substance: POVIDONE-IODINE
  8. AVASTIN [Suspect]
     Active Substance: BEVACIZUMAB
     Indication: DIABETIC EYE DISEASE
  9. VIGAMOX [Concomitant]
     Active Substance: MOXIFLOXACIN HYDROCHLORIDE
     Dosage: OU X 7 DAYS AFTER EACH INTRAVITREAL INJECTION
     Route: 047
  10. VIGAMOX [Concomitant]
     Active Substance: MOXIFLOXACIN HYDROCHLORIDE
     Dosage: 1 GTT OU QID X 7DAYS AFTER EACH INTRAVITREAL INJ.
     Route: 047
     Dates: start: 20100831
  11. BEPREVE [Concomitant]
     Active Substance: BEPOTASTINE BESILATE
     Dosage: 1 DROP B.I.D AFFECTED EYE(S)
     Route: 047
     Dates: start: 20100831
  12. LUCENTIS [Suspect]
     Active Substance: RANIBIZUMAB
     Indication: DIABETIC RETINAL OEDEMA
     Route: 050
  13. AVASTIN [Suspect]
     Active Substance: BEVACIZUMAB
     Indication: DIABETIC RETINOPATHY
  14. AVASTIN [Suspect]
     Active Substance: BEVACIZUMAB
     Indication: DIABETIC RETINAL OEDEMA
     Dosage: OD
     Route: 050
  15. CIPRO [Concomitant]
     Active Substance: CIPROFLOXACIN HYDROCHLORIDE
     Dosage: OD
     Route: 047
  16. PROPARACAINE [Concomitant]
     Active Substance: PROPARACAINE
     Route: 061

REACTIONS (3)
  - Cataract [Unknown]
  - Visual acuity reduced transiently [Unknown]
  - Eye discharge [Unknown]
